FAERS Safety Report 24576051 (Version 1)
Quarter: 2024Q4

REPORT INFORMATION
  Report Type: Spontaneous
  Country: US (occurrence: None)
  Receive Date: 20241101
  Receipt Date: 20241101
  Transmission Date: 20250115
  Serious: Yes (Hospitalization)
  Sender: Public
  Company Number: None

PATIENT
  Age: 17 Year
  Sex: Male

DRUGS (7)
  1. TACROLIMUS [Suspect]
     Active Substance: TACROLIMUS
     Indication: Renal transplant
     Dosage: 3 MG TWICE  DAY ORAL
     Route: 048
  2. MYCOPHENOLIC ACID [Suspect]
     Active Substance: MYCOPHENOLIC ACID
     Indication: Renal transplant
     Dosage: 1000 MG TWICE A DAY ORAL
     Route: 048
  3. PREDNISONE [Concomitant]
     Active Substance: PREDNISONE
  4. nitazoxanide 500mg tablets [Concomitant]
  5. AMLODIPINE [Concomitant]
     Active Substance: AMLODIPINE BESYLATE
  6. PREDNISONE [Concomitant]
     Active Substance: PREDNISONE
  7. ferrous sulfate 325mg tablets [Concomitant]

REACTIONS (1)
  - Transplant rejection [None]

NARRATIVE: CASE EVENT DATE: 20241031
